FAERS Safety Report 9334174 (Version 1)
Quarter: 2013Q2

REPORT INFORMATION
  Report Type: Spontaneous
  Country: US (occurrence: US)
  Receive Date: 20130606
  Receipt Date: 20130606
  Transmission Date: 20140414
  Serious: No
  Sender: FDA-Public Use
  Company Number: US-AMGEN-USASP2013020305

PATIENT
  Age: 71 Year
  Sex: Female
  Weight: 43.64 kg

DRUGS (8)
  1. PROLIA [Suspect]
     Indication: OSTEOPOROSIS POSTMENOPAUSAL
  2. LEVOTHYROXINE [Concomitant]
     Dosage: 25 MUG, UNK
  3. LISINOPRIL [Concomitant]
     Dosage: 10 UNK, UNK
  4. PINDOLOL [Concomitant]
     Dosage: 5 UNK, UNK
  5. DIGOXIN [Concomitant]
     Dosage: 0.25 UNK, UNK
  6. ROPINIROLE [Concomitant]
     Dosage: 1 UNK, UNK
  7. TUMS EXTRA STRENGTH [Concomitant]
     Dosage: UNK
  8. VITAMIN D                          /00107901/ [Concomitant]
     Dosage: 2000 UNK, UNK

REACTIONS (1)
  - Alopecia [Recovered/Resolved]
